FAERS Safety Report 9466864 (Version 2)
Quarter: 2014Q1

REPORT INFORMATION
  Report Type: Report from Study
  Country: BR (occurrence: BR)
  Receive Date: 20130820
  Receipt Date: 20140207
  Transmission Date: 20141002
  Serious: Yes (Other)
  Sender: FDA-Public Use
  Company Number: PHHY2013BR088877

PATIENT
  Age: 46 Year
  Sex: Female
  Weight: 50 kg

DRUGS (4)
  1. ACLASTA [Suspect]
     Indication: OSTEOPOROSIS
     Dosage: 5 MG, UNK
     Route: 042
     Dates: start: 2011
  2. OMEPRAZOLE [Concomitant]
     Dosage: UNK UKN, UNK
  3. VITAMIN [Concomitant]
     Dosage: UNK UKN, UNK
     Dates: start: 2008
  4. PONDERA [Concomitant]
     Dosage: UNK UKN, UNK
     Dates: start: 2013

REACTIONS (8)
  - Lower limb fracture [Unknown]
  - Patella fracture [Recovering/Resolving]
  - Joint injury [Unknown]
  - Joint dislocation [Recovering/Resolving]
  - Pain in extremity [Recovering/Resolving]
  - Swelling [Unknown]
  - Fall [Recovering/Resolving]
  - Vitamin D decreased [Recovering/Resolving]
